FAERS Safety Report 11500007 (Version 1)
Quarter: 2015Q3

REPORT INFORMATION
  Report Type: Spontaneous
  Country: US (occurrence: US)
  Receive Date: 20150914
  Receipt Date: 20150914
  Transmission Date: 20151125
  Serious: No
  Sender: FDA-Public Use
  Company Number: US-BAYER-2015-420561

PATIENT
  Age: 52 Year
  Sex: Male
  Weight: 96.15 kg

DRUGS (3)
  1. ALOE VERA [Concomitant]
     Active Substance: ALOE VERA LEAF
  2. METAMUCIL [Concomitant]
     Active Substance: PLANTAGO SEED
     Indication: CONSTIPATION
     Route: 048
  3. MIRALAX [Suspect]
     Active Substance: POLYETHYLENE GLYCOL 3350
     Dosage: 1 DF, QD
     Route: 048

REACTIONS (3)
  - Diarrhoea [Unknown]
  - Product use issue [Unknown]
  - Abdominal distension [Unknown]
